FAERS Safety Report 25750513 (Version 1)
Quarter: 2025Q3

REPORT INFORMATION
  Report Type: Report from Study
  Country: US (occurrence: US)
  Receive Date: 20250902
  Receipt Date: 20250902
  Transmission Date: 20251021
  Serious: Yes (Other)
  Sender: TG THERAPEUTICS
  Company Number: US-TG THERAPEUTICS INC.-TGT005859

PATIENT

DRUGS (1)
  1. UBLITUXIMAB [Suspect]
     Active Substance: UBLITUXIMAB
     Indication: Multiple sclerosis
     Route: 042

REACTIONS (2)
  - Craniocerebral injury [Unknown]
  - Fall [Unknown]
